FAERS Safety Report 7831798-8 (Version None)
Quarter: 2011Q4

REPORT INFORMATION
  Report Type: 
  Country: None (occurrence: None)
  Receive Date: 20111021
  Receipt Date: 20111012
  Transmission Date: 20120403
  Serious: Yes (Other)
  Sender: FDA-Public Use
  Company Number: US-B.I. PHARMACEUTICALS,INC./RIDGEFIELD-2011-BP-24156BP

PATIENT
  Age: 64 Year
  Sex: Female
  Weight: 67.1 kg

DRUGS (4)
  1. MOBIC [Suspect]
     Indication: ARTHRITIS
     Dosage: 50 MG
     Route: 048
  2. CELEBREX [Suspect]
     Indication: ARTHRITIS
     Route: 048
  3. CHEMOTHERAPY [Concomitant]
     Indication: BREAST CANCER
  4. PRIMIDONE [Concomitant]
     Indication: CONVULSION

REACTIONS (9)
  - CATARACT [None]
  - WEIGHT DECREASED [None]
  - OEDEMA PERIPHERAL [None]
  - NERVE COMPRESSION [None]
  - INTERVERTEBRAL DISC DISORDER [None]
  - CONSTIPATION [None]
  - OESOPHAGEAL DISORDER [None]
  - DRY EYE [None]
  - DRUG INEFFECTIVE [None]
